FAERS Safety Report 8531589-9 (Version None)
Quarter: 2012Q3

REPORT INFORMATION
  Report Type: 
  Country: None (occurrence: None)
  Receive Date: 20120723
  Receipt Date: 20120709
  Transmission Date: 20120928
  Serious: Yes (Life-Threatening)
  Sender: FDA-Public Use
  Company Number: DE-ROCHE-1083528

PATIENT
  Sex: Male
  Weight: 94 kg

DRUGS (6)
  1. ACTIVASE [Suspect]
     Indication: CEREBRAL ISCHAEMIA
  2. IODINE CONTRAST [Suspect]
     Indication: ANGIOGRAM
     Route: 042
     Dates: start: 20120621
  3. ACTIVASE [Suspect]
     Indication: THROMBOLYSIS
     Route: 042
     Dates: start: 20120621
  4. RAMIPRIL [Concomitant]
     Indication: HYPERTENSION
     Route: 048
  5. ACTIVASE [Suspect]
     Indication: CEREBRAL ARTERY OCCLUSION
  6. BISOPROLOL FUMARATE [Concomitant]
     Indication: HYPERTENSION
     Route: 048

REACTIONS (5)
  - RASH [None]
  - PRURITUS [None]
  - CARDIOVASCULAR INSUFFICIENCY [None]
  - ANAPHYLACTIC SHOCK [None]
  - APHASIA [None]
